APPROVED DRUG PRODUCT: VIJOICE
Active Ingredient: ALPELISIB
Strength: 50MG/PACKET
Dosage Form/Route: GRANULES;ORAL
Application: N218466 | Product #001
Applicant: NOVARTIS PHARMACEUTICALS CORP
Approved: Apr 24, 2024 | RLD: Yes | RS: Yes | Type: RX

PATENTS:
Patent 12427141 | Expires: Feb 17, 2037
Patent 11433059 | Expires: Feb 17, 2037
Patent 8476268 | Expires: Sep 10, 2029
Patent 8227462 | Expires: Apr 29, 2033